FAERS Safety Report 16060883 (Version 1)
Quarter: 2019Q1

REPORT INFORMATION
  Report Type: Spontaneous
  Country: FR (occurrence: FR)
  Receive Date: 20190312
  Receipt Date: 20190312
  Transmission Date: 20190418
  Serious: Yes (Hospitalization)
  Sender: FDA-Public Use
  Company Number: FR-SA-2019SA065277

PATIENT
  Age: 63 Year
  Sex: Female

DRUGS (9)
  1. NIMODIPINE. [Suspect]
     Active Substance: NIMODIPINE
     Indication: HYPERTENSION
     Dosage: UNK UNK, UNK
     Route: 041
     Dates: start: 20181207, end: 20181211
  2. URAPIDIL [Concomitant]
     Active Substance: URAPIDIL
     Indication: HYPERTENSION
     Dosage: UNK UNK, UNK
     Route: 041
     Dates: start: 20181211, end: 20181211
  3. IPRATROPIUM [Concomitant]
     Active Substance: IPRATROPIUM
     Dosage: UNK UNK, UNK
     Route: 049
     Dates: start: 20181207
  4. PARACETAMOL [Concomitant]
     Active Substance: ACETAMINOPHEN
     Dosage: UNK UNK, UNK
     Route: 065
     Dates: start: 20181209
  5. LOVENOX [Suspect]
     Active Substance: ENOXAPARIN SODIUM
     Indication: THROMBOSIS PROPHYLAXIS
     Dosage: 400 INTERNATIONAL UNIT, QD
     Route: 058
     Dates: start: 20181207, end: 20181211
  6. LANSOPRAZOLE. [Suspect]
     Active Substance: LANSOPRAZOLE
     Indication: PROPHYLAXIS
     Dosage: 1 DF, QD
     Route: 048
     Dates: start: 20181209, end: 20181211
  7. PYRIDOXINE [Concomitant]
     Active Substance: PYRIDOXINE
     Dosage: UNK UNK, UNK
     Route: 042
     Dates: start: 20181209
  8. TRAMADOL. [Concomitant]
     Active Substance: TRAMADOL
     Dosage: UNK UNK, UNK
     Route: 065
     Dates: start: 20181211
  9. NICOTINAMIDE [Concomitant]
     Active Substance: NIACINAMIDE
     Dosage: 100 MG, QD
     Route: 042
     Dates: start: 20181209

REACTIONS (1)
  - Rash maculo-papular [Recovering/Resolving]

NARRATIVE: CASE EVENT DATE: 20181210
